FAERS Safety Report 25892279 (Version 1)
Quarter: 2025Q4

REPORT INFORMATION
  Report Type: Spontaneous
  Country: RU (occurrence: RU)
  Receive Date: 20251007
  Receipt Date: 20251007
  Transmission Date: 20260117
  Serious: Yes (Other)
  Sender: ABBVIE
  Company Number: RU-ABBOTT-2025A-1402885

PATIENT
  Sex: Female

DRUGS (2)
  1. TRICOR [Suspect]
     Active Substance: FENOFIBRATE
     Indication: Blood triglycerides abnormal
     Route: 048
  2. OMACOR [Suspect]
     Active Substance: OMEGA-3-ACID ETHYL ESTERS
     Indication: Blood triglycerides increased
     Dosage: 2 CAPSULES PER DAY, AT LEAST 2 MONTHS
     Route: 065

REACTIONS (2)
  - Drug effect less than expected [Unknown]
  - Renal failure [Unknown]
